FAERS Safety Report 6542128-6 (Version None)
Quarter: 2010Q1

REPORT INFORMATION
  Report Type: 
  Country: None (occurrence: None)
  Receive Date: 20100119
  Receipt Date: 20100105
  Transmission Date: 20100710
  Serious: No
  Sender: FDA-Public Use
  Company Number: US-BAYER-201010936NA

PATIENT
  Age: 45 Year
  Sex: Female
  Weight: 68 kg

DRUGS (3)
  1. MAGNEVIST [Suspect]
     Indication: NUCLEAR MAGNETIC RESONANCE IMAGING
     Dosage: TOTAL DAILY DOSE: 12 ML  UNIT DOSE: 20 ML
     Route: 042
     Dates: start: 20091226, end: 20091226
  2. VANCOMYCIN [Concomitant]
  3. DIABETES MEDICATION [Concomitant]

REACTIONS (2)
  - NAUSEA [None]
  - VOMITING [None]
